FAERS Safety Report 9127423 (Version 3)
Quarter: 2013Q2

REPORT INFORMATION
  Report Type: Spontaneous
  Country: IN (occurrence: IN)
  Receive Date: 20130228
  Receipt Date: 20130412
  Transmission Date: 20140414
  Serious: Yes (Hospitalization, Other)
  Sender: FDA-Public Use
  Company Number: IN-GENZYME-THYM-1003668

PATIENT
  Age: 43 Year
  Sex: Female
  Weight: 45 kg

DRUGS (4)
  1. THYMOGLOBULINE [Suspect]
     Indication: BONE MARROW CONDITIONING REGIMEN
     Dosage: 75 MG, QD (SINGLE DOSE)
     Route: 042
     Dates: start: 20130120, end: 20130120
  2. RITUXIMAB [Concomitant]
     Indication: PRODUCT USED FOR UNKNOWN INDICATION
     Dosage: 100 MG (STAT)
     Route: 065
  3. TACSANT [Concomitant]
     Indication: PRODUCT USED FOR UNKNOWN INDICATION
     Dosage: 7 MG, BID
     Route: 065
     Dates: start: 20130118
  4. CELLCEPT [Concomitant]
     Indication: PRODUCT USED FOR UNKNOWN INDICATION
     Dosage: 500 MG, BID
     Route: 065
     Dates: start: 20130118

REACTIONS (2)
  - Drug ineffective [Unknown]
  - Transplant rejection [Recovered/Resolved]
